FAERS Safety Report 15321058 (Version 1)
Quarter: 2018Q3

REPORT INFORMATION
  Report Type: Spontaneous
  Country: US (occurrence: US)
  Receive Date: 20180821
  Receipt Date: 20180821
  Transmission Date: 20181010
  Serious: Yes (Disabling)
  Sender: FDA-Public Use
  Company Number: None

PATIENT
  Age: 71 Year
  Sex: Female
  Weight: 54 kg

DRUGS (9)
  1. BUNAVAIL [Suspect]
     Active Substance: BUPRENORPHINE HYDROCHLORIDE\NALOXONE HYDROCHLORIDE DIHYDRATE
     Indication: DRUG DEPENDENCE
     Dosage: QUANTITY:1 DF DOSAGE FORM;OTHER ROUTE:STICK AGAINST CHEEK SKIN?
     Dates: start: 20180622
  2. TIZABUDUBE [Concomitant]
  3. HYDRALAZINE [Concomitant]
     Active Substance: HYDRALAZINE HYDROCHLORIDE
  4. RANITIDINE. [Concomitant]
     Active Substance: RANITIDINE
  5. OMEGA 3 FISH OIL [Concomitant]
     Active Substance: FISH OIL\OMEGA-3 FATTY ACIDS
  6. METORPOLOL ER [Concomitant]
  7. CLONIDINE. [Concomitant]
     Active Substance: CLONIDINE
  8. TYLENOL [Concomitant]
     Active Substance: ACETAMINOPHEN
  9. VITAMIN D SUPPLEMENTS [Concomitant]

REACTIONS (14)
  - Decreased appetite [None]
  - Dysphonia [None]
  - Product physical consistency issue [None]
  - Tooth loss [None]
  - Tooth fracture [None]
  - Application site pain [None]
  - Insomnia [None]
  - Dizziness [None]
  - Tooth discolouration [None]
  - Hypotension [None]
  - Vision blurred [None]
  - Tooth disorder [None]
  - Quality of life decreased [None]
  - Headache [None]

NARRATIVE: CASE EVENT DATE: 20180622
